FAERS Safety Report 16779249 (Version 2)
Quarter: 2019Q4

REPORT INFORMATION
  Report Type: Spontaneous
  Country: US (occurrence: US)
  Receive Date: 20190906
  Receipt Date: 20191002
  Transmission Date: 20200122
  Serious: No
  Sender: FDA-Public Use
  Company Number: US-PFIZER INC-2019377239

PATIENT
  Age: 43 Year
  Sex: Female
  Weight: 54.43 kg

DRUGS (2)
  1. LEVOTHYROXINE. [Suspect]
     Active Substance: LEVOTHYROXINE
     Indication: HYPOTHYROIDISM
     Dosage: 0.88 MG, 1X/DAY
     Route: 048
     Dates: start: 2005
  2. CYTOMEL [Suspect]
     Active Substance: LIOTHYRONINE SODIUM
     Indication: HYPOTHYROIDISM
     Dosage: 5 UG, 1X/DAY
     Route: 048

REACTIONS (3)
  - Fibromyalgia [Not Recovered/Not Resolved]
  - Joint lock [Unknown]
  - Pain [Unknown]

NARRATIVE: CASE EVENT DATE: 20190821
